FAERS Safety Report 5268956-5 (Version None)
Quarter: 2007Q1

REPORT INFORMATION
  Report Type: 
  Country: None (occurrence: None)
  Receive Date: 20061214
  Receipt Date: 20060803
  Transmission Date: 20070707
  Serious: Yes (Other)
  Sender: FDA-Public Use
  Company Number: 2006096121

PATIENT
  Age: 36 Year
  Sex: Female
  Weight: 86.1834 kg

DRUGS (6)
  1. XANAX [Suspect]
     Indication: DRUG USE FOR UNKNOWN INDICATION
  2. LYRICA [Suspect]
     Indication: ENDOMETRIOSIS
     Dosage: 150 MG, (75 MG, 2 IN 1 D)
     Dates: start: 20060618
  3. PROZAC [Concomitant]
  4. INDERAL [Concomitant]
  5. ULTRAM [Concomitant]
  6. LUPRON [Concomitant]

REACTIONS (3)
  - ENDOMETRIOSIS [None]
  - HALLUCINATION, VISUAL [None]
  - SOMNOLENCE [None]
